FAERS Safety Report 21507359 (Version 1)
Quarter: 2022Q4

REPORT INFORMATION
  Report Type: Spontaneous
  Country: US (occurrence: None)
  Receive Date: 20221025
  Receipt Date: 20221025
  Transmission Date: 20230112
  Serious: Yes (Other)
  Sender: FDA-Public Use
  Company Number: None

PATIENT
  Age: 49 Year
  Sex: Female

DRUGS (10)
  1. CIMZIA [Suspect]
     Active Substance: CERTOLIZUMAB PEGOL
     Indication: Rheumatoid arthritis
     Dosage: FREQUENCY : EVERY OTHER WEEK;?
     Route: 058
     Dates: start: 20210312, end: 20221015
  2. LEFLUNOMIDE [Concomitant]
     Active Substance: LEFLUNOMIDE
  3. PREDNISONE [Concomitant]
     Active Substance: PREDNISONE
  4. SULFASALAZINE [Concomitant]
     Active Substance: SULFASALAZINE
  5. ACETAMINOPHEN [Concomitant]
     Active Substance: ACETAMINOPHEN
  6. MAGNESIUM [Concomitant]
     Active Substance: MAGNESIUM
  7. VITAMIN D3 [Concomitant]
  8. ALOE VERA GEL [Concomitant]
     Active Substance: ALOE VERA LEAF
  9. FISH OIL [Concomitant]
     Active Substance: FISH OIL
  10. MULTI-VITAMIN [Concomitant]

REACTIONS (1)
  - Malignant melanoma [None]
